FAERS Safety Report 5757843-1 (Version None)
Quarter: 2008Q2

REPORT INFORMATION
  Report Type: 
  Country: None (occurrence: None)
  Receive Date: 20080603
  Receipt Date: 20080529
  Transmission Date: 20081010
  Serious: Yes (Death, Other)
  Sender: FDA-Public Use
  Company Number: PHHY2008NL08057

PATIENT
  Sex: Female
  Weight: 62.2 kg

DRUGS (12)
  1. EXELON [Suspect]
     Indication: DEMENTIA ALZHEIMER'S TYPE
     Dosage: UNK
     Route: 062
     Dates: start: 20080402, end: 20080407
  2. ACENOCOUMAROL [Concomitant]
     Route: 048
  3. CALCICHEW D3 [Concomitant]
     Route: 048
  4. LASIX [Concomitant]
     Route: 048
  5. METOPROLOL TARTRATE [Concomitant]
     Route: 048
  6. LIPITOR [Concomitant]
  7. ATROVENT [Concomitant]
     Dosage: 4DD2 PUFFS
  8. ARIMIDEX [Concomitant]
  9. ALENDRONIC ACID [Concomitant]
     Dosage: 70 MG PER WEEK
  10. METHYLCELLULOSE [Concomitant]
     Route: 047
  11. AMITRIPTYLINE HCL [Concomitant]
  12. LANOXIN [Concomitant]

REACTIONS (7)
  - DELIRIUM [None]
  - DIARRHOEA [None]
  - GENERAL PHYSICAL HEALTH DETERIORATION [None]
  - NAUSEA [None]
  - SKIN REACTION [None]
  - URINARY TRACT INFECTION [None]
  - VOMITING [None]
